FAERS Safety Report 16624040 (Version 1)
Quarter: 2019Q3

REPORT INFORMATION
  Report Type: Spontaneous
  Country: US (occurrence: US)
  Receive Date: 20190724
  Receipt Date: 20190724
  Transmission Date: 20191004
  Serious: Yes (Hospitalization, Other)
  Sender: FDA-Public Use
  Company Number: US-LUPIN PHARMACEUTICALS INC.-2019-04491

PATIENT
  Age: 76 Year
  Sex: Female

DRUGS (2)
  1. MORPHINE SULPHATE EXTENDED RELEASE TABLET 30 MG [Suspect]
     Active Substance: MORPHINE SULFATE
     Dosage: 1 DOSAGE FORM, QD
     Route: 048
  2. MORPHINE SULPHATE EXTENDED RELEASE TABLET 30 MG [Suspect]
     Active Substance: MORPHINE SULFATE
     Indication: NECK PAIN
     Dosage: 1 DOSAGE FORM, BID (PRESCRIBED)
     Route: 048

REACTIONS (7)
  - Choking [Recovering/Resolving]
  - Toxicity to various agents [Recovering/Resolving]
  - Somnolence [Recovering/Resolving]
  - Dysarthria [Recovering/Resolving]
  - Mental status changes [Recovering/Resolving]
  - Muscle twitching [Recovering/Resolving]
  - Loss of consciousness [Recovering/Resolving]
